FAERS Safety Report 6631810-8 (Version None)
Quarter: 2010Q1

REPORT INFORMATION
  Report Type: 
  Country: None (occurrence: None)
  Receive Date: 20100312
  Receipt Date: 20100216
  Transmission Date: 20100710
  Serious: Yes (Life-Threatening, Hospitalization)
  Sender: FDA-Public Use
  Company Number: US-ROCHE-428064

PATIENT
  Age: 68 Year
  Sex: Male
  Weight: 90 kg

DRUGS (7)
  1. BEVACIZUMAB [Suspect]
     Indication: COLORECTAL CANCER
     Route: 042
     Dates: start: 20041209
  2. OXALIPLATIN [Suspect]
     Indication: COLORECTAL CANCER
     Dosage: ON DAY 1
     Route: 042
  3. 5-FLUOROURACIL [Suspect]
     Indication: COLORECTAL CANCER
     Dosage: 400 MG/M2 BOLUS FOLLOWED BY 2400 MG/M2 INFUSION ON DAYS ONE THROUGH TWO OF TREATMENT
     Route: 042
  4. LEUCOVORIN CALCIUM [Suspect]
     Indication: COLORECTAL CANCER
     Dosage: OVER TWO HOURS ON DAY ONE.
     Route: 065
  5. VICODIN [Concomitant]
  6. BEXTRA [Concomitant]
  7. PRAVACHOL [Concomitant]

REACTIONS (5)
  - NECROSIS [None]
  - NECROTISING FASCIITIS [None]
  - RENAL FAILURE ACUTE [None]
  - RESPIRATORY FAILURE [None]
  - SEPTIC SHOCK [None]
